FAERS Safety Report 10237046 (Version 1)
Quarter: 2014Q1

REPORT INFORMATION
  Report Type: Spontaneous
  Country: US (occurrence: None)
  Receive Date: 20140306
  Receipt Date: 20140306
  Transmission Date: 20141002
  Serious: Yes (Other)
  Sender: FDA-Public Use
  Company Number: 163-21880-12122323

PATIENT
  Age: 66 Year
  Sex: Female
  Weight: 58.51 kg

DRUGS (9)
  1. REVLIMID (LENALIDOMIDE) (CAPSULES) [Suspect]
     Indication: PLASMA CELL MYELOMA
     Route: 048
     Dates: start: 2006
  2. VELCADE (BORTEZOMIB) (UNKNOWN) [Suspect]
     Indication: PRODUCT USED FOR UNKNOWN INDICATION
  3. BIOTIN (BIOTIN) (CAPSULES) [Concomitant]
  4. MULTIVITMANS (MULTIVITAMINS) (CAPSULES) [Concomitant]
  5. NEURONTIN (GABAPENTIN) (CAPSULES) [Concomitant]
  6. VITAMIN D (ERGOCALCIFEROL) (UNKNOWN) [Concomitant]
  7. ZOFRAN (ONDANSETRON HYDROCHLORIDE) (TABLETS) [Concomitant]
  8. ZYRTEC (CETIRIZINE HYDROCHLORIDE) (TABLETS) [Concomitant]
  9. ACYCLOVIR (ACICLOVIR) (TABLETS) [Concomitant]

REACTIONS (6)
  - Diarrhoea [None]
  - White blood cell count decreased [None]
  - Blood sodium decreased [None]
  - Asthenia [None]
  - Urinary tract infection [None]
  - Blood potassium decreased [None]
